FAERS Safety Report 6569632-9 (Version None)
Quarter: 2010Q1

REPORT INFORMATION
  Report Type: 
  Country: None (occurrence: None)
  Receive Date: 20100204
  Receipt Date: 20100126
  Transmission Date: 20100710
  Serious: Yes (Hospitalization)
  Sender: FDA-Public Use
  Company Number: DE-ABBOTT-09P-062-0600829-00

PATIENT
  Age: 67 Year
  Sex: Male

DRUGS (8)
  1. HUMIRA [Suspect]
     Indication: RHEUMATOID ARTHRITIS
     Route: 058
     Dates: start: 20040301, end: 20080502
  2. HUMIRA [Suspect]
     Dates: start: 20090613
  3. INFLIXIMAB [Concomitant]
     Indication: RHEUMATOID ARTHRITIS
     Dates: start: 20030201, end: 20040101
  4. METHOTREXATE [Concomitant]
     Indication: RHEUMATOID ARTHRITIS
     Dates: start: 20030201, end: 20080201
  5. PREDNISOLON [Concomitant]
     Indication: RHEUMATOID ARTHRITIS
     Dates: start: 20071001
  6. TILIDIN [Concomitant]
     Indication: DRUG USE FOR UNKNOWN INDICATION
     Dates: start: 20031101
  7. ATACAND [Concomitant]
     Indication: HYPERTENSION
     Dates: start: 20050601
  8. METAMIZOL [Concomitant]
     Indication: PAIN
     Dates: start: 20051101

REACTIONS (2)
  - ORCHITIS [None]
  - RENAL IMPAIRMENT [None]
